FAERS Safety Report 9295251 (Version 1)
Quarter: 2013Q1

REPORT INFORMATION
  Report Type: Spontaneous
  Country: US (occurrence: None)
  Receive Date: 20121227
  Receipt Date: 20121227
  Transmission Date: 20140127
  Serious: Yes (Other)
  Sender: FDA-Public Use
  Company Number: PHEH2011US009663

PATIENT
  Age: 62 Year
  Sex: Female
  Weight: 64.82 kg

DRUGS (1)
  1. EXJADE [Suspect]
     Route: 048
     Dates: start: 20111115

REACTIONS (6)
  - Frequent bowel movements [None]
  - Nausea [None]
  - Abdominal discomfort [None]
  - Fatigue [None]
  - Diarrhoea [None]
  - Flatulence [None]
